FAERS Safety Report 9018929 (Version 1)
Quarter: 2013Q1

REPORT INFORMATION
  Report Type: Spontaneous
  Country: AU (occurrence: AU)
  Receive Date: 20130118
  Receipt Date: 20130118
  Transmission Date: 20140127
  Serious: Yes (Other)
  Sender: FDA-Public Use
  Company Number: CHPA2013AU000613

PATIENT
  Age: 50 Year
  Sex: Female

DRUGS (1)
  1. NICOTINELL [Suspect]
     Indication: SMOKING CESSATION THERAPY
     Dosage: 4 MG, ONCE/SINGLE
     Route: 002
     Dates: start: 20130116, end: 20130116

REACTIONS (4)
  - Asthma [Recovering/Resolving]
  - Dyspnoea [Recovering/Resolving]
  - Throat irritation [Recovered/Resolved]
  - Vomiting [Recovered/Resolved]
